FAERS Safety Report 5394373-3 (Version None)
Quarter: 2007Q3

REPORT INFORMATION
  Report Type: 
  Country: None (occurrence: None)
  Receive Date: 20070723
  Receipt Date: 20070712
  Transmission Date: 20080115
  Serious: Yes (Death)
  Sender: FDA-Public Use
  Company Number: JP-MERCK-0706USA04278

PATIENT
  Age: 89 Year
  Sex: Female

DRUGS (6)
  1. PEPCID [Suspect]
     Route: 042
     Dates: start: 20070613, end: 20070614
  2. FOSAMAX [Concomitant]
     Route: 048
     Dates: end: 20070614
  3. MAGNESIUM OXIDE [Concomitant]
     Route: 048
     Dates: end: 20070612
  4. NITROPEN [Concomitant]
     Route: 060
     Dates: start: 20070605, end: 20070605
  5. [THERAPY UNSPECIFIED] [Concomitant]
     Route: 042
     Dates: start: 20070602, end: 20070615
  6. DEXTROSE [Concomitant]
     Route: 042
     Dates: end: 20070615

REACTIONS (1)
  - RENAL FAILURE ACUTE [None]
